FAERS Safety Report 22638279 (Version 2)
Quarter: 2025Q2

REPORT INFORMATION
  Report Type: Spontaneous
  Country: ES (occurrence: ES)
  Receive Date: 20230626
  Receipt Date: 20250407
  Transmission Date: 20250717
  Serious: Yes (Hospitalization)
  Sender: TEVA
  Company Number: None

PATIENT
  Age: 58 Year
  Sex: Female
  Weight: 55 kg

DRUGS (3)
  1. TRAMADOL [Suspect]
     Active Substance: TRAMADOL
     Indication: Back pain
     Dosage: TRAMADOL (2389A)
     Route: 048
     Dates: start: 20220517, end: 20220520
  2. MEPERIDINE HYDROCHLORIDE [Suspect]
     Active Substance: MEPERIDINE HYDROCHLORIDE
     Indication: Back pain
     Dosage: PETIDINA (1906A)
     Route: 042
     Dates: start: 20220514, end: 20220517
  3. MORPHINE HYDROCHLORIDE [Suspect]
     Active Substance: MORPHINE HYDROCHLORIDE
     Indication: Back pain
     Dosage: 1 ML
     Route: 058
     Dates: start: 20220516, end: 20220520

REACTIONS (1)
  - Brain stem syndrome [Recovering/Resolving]

NARRATIVE: CASE EVENT DATE: 20220519
